FAERS Safety Report 13097382 (Version 1)
Quarter: 2017Q1

REPORT INFORMATION
  Report Type: Other
  Country: IT (occurrence: IT)
  Receive Date: 20170109
  Receipt Date: 20170109
  Transmission Date: 20170428
  Serious: Yes (Hospitalization)
  Sender: FDA-Public Use
  Company Number: IT-APOTEX-2017AP005003

PATIENT
  Age: 83 Year
  Sex: Female

DRUGS (1)
  1. LOSARTAN DOC GENERICI [Suspect]
     Active Substance: LOSARTAN
     Indication: PRODUCT USED FOR UNKNOWN INDICATION
     Route: 065

REACTIONS (2)
  - Cerebral salt-wasting syndrome [Unknown]
  - Hyponatraemia [Unknown]
